FAERS Safety Report 20691416 (Version 1)
Quarter: 2022Q2

REPORT INFORMATION
  Report Type: Spontaneous
  Country: US (occurrence: None)
  Receive Date: 20220406
  Receipt Date: 20220406
  Transmission Date: 20220721
  Serious: Yes (Death)
  Sender: FDA-Public Use
  Company Number: None

PATIENT
  Age: 85 Year
  Sex: Female

DRUGS (10)
  1. LOKELMA [Suspect]
     Active Substance: SODIUM ZIRCONIUM CYCLOSILICATE
     Indication: Hyperkalaemia
     Dosage: FREQUENCY : DAILY;?
     Route: 048
     Dates: start: 20211012, end: 202203
  2. TYLENOL WITH CODEINE [Concomitant]
     Active Substance: ACETAMINOPHEN\CODEINE PHOSPHATE
  3. Calcitriol 0.25mcg [Concomitant]
  4. FUROSEMIDE [Concomitant]
  5. Levothvroxine [Concomitant]
  6. Megestrol 40mg [Concomitant]
  7. PROMETHAZINE [Concomitant]
     Active Substance: PROMETHAZINE HYDROCHLORIDE
  8. QUETIAPINE [Concomitant]
     Active Substance: QUETIAPINE
  9. SODIUM BICARBONATE [Concomitant]
     Active Substance: SODIUM BICARBONATE
  10. Vit D2 50,000IU [Concomitant]

REACTIONS (1)
  - Death [None]
